FAERS Safety Report 9514974 (Version 4)
Quarter: 2013Q4

REPORT INFORMATION
  Report Type: Spontaneous
  Country: US (occurrence: None)
  Receive Date: 20130909
  Receipt Date: 20131127
  Transmission Date: 20140711
  Serious: Yes (Death, Life-Threatening, Hospitalization)
  Sender: FDA-Public Use
  Company Number: 2013-1458

PATIENT
  Age: 54 Year
  Sex: Male

DRUGS (3)
  1. KYPROLIS (CARFILZOMIB) (INJECTION FOR INFUSION) (CARFILZOMIB) [Suspect]
     Indication: AMYLOIDOSIS
     Dates: start: 201307
  2. DEXAMETHASONE [Concomitant]
  3. POMALYST (POMALIDOMIDE) [Concomitant]

REACTIONS (7)
  - Cardiogenic shock [None]
  - Atrioventricular block [None]
  - Renal failure [None]
  - Cerebral infarction [None]
  - Syncope [None]
  - Multi-organ failure [None]
  - Myocardial ischaemia [None]
